FAERS Safety Report 8582361-5 (Version None)
Quarter: 2012Q3

REPORT INFORMATION
  Report Type: 
  Country: None (occurrence: None)
  Receive Date: 20120809
  Receipt Date: 20120730
  Transmission Date: 20120928
  Serious: Yes (Hospitalization)
  Sender: FDA-Public Use
  Company Number: US-GLAXOSMITHKLINE-A0701534A

PATIENT
  Age: 49 Year
  Sex: Male
  Weight: 130.9 kg

DRUGS (9)
  1. FUROSEMIDE [Concomitant]
  2. HUMALOG [Concomitant]
  3. AVANDIA [Suspect]
     Indication: PRODUCT USED FOR UNKNOWN INDICATION
     Dosage: 8MG PER DAY
     Route: 048
     Dates: start: 20000112, end: 20050906
  4. XANAX [Concomitant]
  5. NITROGLYCERIN [Concomitant]
  6. GLUCOTROL [Concomitant]
  7. AVANDAMET [Suspect]
     Indication: PRODUCT USED FOR UNKNOWN INDICATION
     Route: 065
     Dates: start: 20050906, end: 20060228
  8. TOPROL-XL [Concomitant]
  9. GLUCOPHAGE [Concomitant]

REACTIONS (3)
  - CARDIAC FAILURE CONGESTIVE [None]
  - MYOCARDIAL INFARCTION [None]
  - INJURY [None]
